FAERS Safety Report 11155545 (Version 3)
Quarter: 2015Q3

REPORT INFORMATION
  Report Type: Report from Study
  Country: UY (occurrence: AR)
  Receive Date: 20150602
  Receipt Date: 20150708
  Transmission Date: 20151125
  Serious: Yes (Hospitalization, Other)
  Sender: FDA-Public Use
  Company Number: UY-ABBVIE-15P-168-1360668-00

PATIENT
  Sex: Female

DRUGS (2)
  1. ZEMPLAR [Suspect]
     Active Substance: PARICALCITOL
     Indication: HYPERPARATHYROIDISM SECONDARY
     Route: 042
     Dates: start: 201308
  2. ZEMPLAR [Suspect]
     Active Substance: PARICALCITOL
     Route: 065
     Dates: end: 20150325

REACTIONS (2)
  - Blood parathyroid hormone increased [Recovered/Resolved]
  - Parathyroid disorder [Unknown]

NARRATIVE: CASE EVENT DATE: 2015
